FAERS Safety Report 9602952 (Version 1)
Quarter: 2013Q4

REPORT INFORMATION
  Report Type: Report from Study
  Country: US (occurrence: US)
  Receive Date: 20131007
  Receipt Date: 20131007
  Transmission Date: 20140711
  Serious: Yes (Hospitalization)
  Sender: FDA-Public Use
  Company Number: US-ELI_LILLY_AND_COMPANY-US201309008590

PATIENT
  Sex: Female

DRUGS (2)
  1. TADALAFIL [Suspect]
     Indication: LUNG DISORDER
     Dosage: 40 MG, QD
     Dates: end: 20130904
  2. LETAIRIS [Concomitant]
     Indication: LUNG DISORDER

REACTIONS (4)
  - Headache [Recovered/Resolved]
  - Malaise [Unknown]
  - Visual impairment [Unknown]
  - Lung disorder [Unknown]
